FAERS Safety Report 25557030 (Version 2)
Quarter: 2025Q4

REPORT INFORMATION
  Report Type: Spontaneous
  Country: US (occurrence: US)
  Receive Date: 20250715
  Receipt Date: 20251202
  Transmission Date: 20260117
  Serious: No
  Sender: INCYTE
  Company Number: US-EVENT-003526

PATIENT

DRUGS (1)
  1. OPZELURA [Suspect]
     Active Substance: RUXOLITINIB PHOSPHATE
     Indication: Lichen sclerosus
     Dosage: UNK, TWICE DAILY
     Route: 065

REACTIONS (3)
  - Off label use [Unknown]
  - Product dose omission issue [Not Recovered/Not Resolved]
  - Product physical consistency issue [Unknown]
